FAERS Safety Report 9652487 (Version 1)
Quarter: 2013Q4

REPORT INFORMATION
  Report Type: Spontaneous
  Country: US (occurrence: None)
  Receive Date: 20131025
  Receipt Date: 20131025
  Transmission Date: 20140711
  Serious: Yes (Other)
  Sender: FDA-Public Use
  Company Number: AUR-APL-2013-08413

PATIENT
  Age: 75 Year
  Sex: Male
  Weight: 72.58 kg

DRUGS (10)
  1. MELOXICAM [Suspect]
     Indication: ARTHRALGIA
     Dates: start: 201307
  2. XYZAL [Concomitant]
  3. SINEMET [Concomitant]
  4. PREDNISONE [Concomitant]
  5. IBUPROFEN [Concomitant]
  6. ASA (ACETYLSALICYLIC ACID) [Concomitant]
  7. HEPARIN [Concomitant]
  8. DOCUSATE [Concomitant]
  9. PSYLLIUM (PLANTAGO AFRA) [Concomitant]
  10. CARBIDO-LEVODOPA (SINEMET) [Concomitant]

REACTIONS (21)
  - Refusal of treatment by patient [None]
  - Blood pressure increased [None]
  - Sinus bradycardia [None]
  - Oedema peripheral [None]
  - Rash [None]
  - Bundle branch block right [None]
  - Aortic calcification [None]
  - Pulmonary mass [None]
  - Granuloma [None]
  - Arteriosclerosis [None]
  - Electrocardiogram ST-T change [None]
  - Transient ischaemic attack [None]
  - Ventricular hypertrophy [None]
  - Mitral valve incompetence [None]
  - Aortic dilatation [None]
  - Tricuspid valve incompetence [None]
  - Pulmonary valve incompetence [None]
  - Cerebral infarction [None]
  - Carotid artery occlusion [None]
  - Cerebral atrophy [None]
  - Pain [None]
